FAERS Safety Report 4628609-0 (Version None)
Quarter: 2005Q2

REPORT INFORMATION
  Report Type: 
  Country: None (occurrence: None)
  Receive Date: 20050404
  Receipt Date: 20050323
  Transmission Date: 20051028
  Serious: Yes (Life-Threatening)
  Sender: FDA-Public Use
  Company Number: 805#1#2005-00013

PATIENT
  Age: 80 Year
  Sex: Female

DRUGS (9)
  1. ALPROSTADIL [Suspect]
     Indication: LUMBAR SPINAL STENOSIS
     Dosage: 1.80 MCG (40 MCG 2 IN 1 DAY(S))
     Route: 041
     Dates: start: 20050310, end: 20050312
  2. LOXOPROFEN SODIUM (LOXOPROFEN SODIUM) [Concomitant]
  3. TEPRENONE (TEPRENONE) [Concomitant]
  4. CALCIUM-L-ASPARTATE (ASPARTATE CALCIUM) [Concomitant]
  5. AMLODIPINE BESYLATE [Concomitant]
  6. CALCITRIOL (CALCITROL) [Concomitant]
  7. LOSARTAN POTASSIUM [Concomitant]
  8. SODIUM-FERROUS-CITRATE (FERROUS CITRATE) [Concomitant]
  9. SALICYLAMIDE/ACETAMINOPHEN/ANHYDROUS-CAFFEINE/PROMETHAZINE-METHYLENEDI [Concomitant]

REACTIONS (1)
  - IDIOPATHIC THROMBOCYTOPENIC PURPURA [None]
